FAERS Safety Report 18283213 (Version 2)
Quarter: 2020Q3

REPORT INFORMATION
  Report Type: Spontaneous
  Country: US (occurrence: US)
  Receive Date: 20200918
  Receipt Date: 20200930
  Transmission Date: 20201103
  Serious: No
  Sender: FDA-Public Use
  Company Number: US-AMGEN-USA-20200307831

PATIENT
  Age: 35 Year
  Sex: Male

DRUGS (1)
  1. OTEZLA [Suspect]
     Active Substance: APREMILAST
     Indication: PRODUCT USED FOR UNKNOWN INDICATION
     Dosage: 30 MILLIGRAM, BID
     Route: 048
     Dates: start: 201909

REACTIONS (2)
  - Stress [Unknown]
  - Skin fissures [Unknown]

NARRATIVE: CASE EVENT DATE: 20200323
